FAERS Safety Report 10154296 (Version 1)
Quarter: 2014Q2

REPORT INFORMATION
  Report Type: Spontaneous
  Country: US (occurrence: US)
  Receive Date: 20140506
  Receipt Date: 20140506
  Transmission Date: 20141212
  Serious: Yes (Other)
  Sender: FDA-Public Use
  Company Number: US-ELI_LILLY_AND_COMPANY-US201404009089

PATIENT
  Sex: Female

DRUGS (2)
  1. CYMBALTA [Suspect]
     Indication: FIBROMYALGIA
  2. CYMBALTA [Suspect]
     Indication: DEPRESSION

REACTIONS (3)
  - Visual impairment [Unknown]
  - Feeling abnormal [Unknown]
  - Drug withdrawal syndrome [Unknown]
